FAERS Safety Report 12392251 (Version 1)
Quarter: 2016Q2

REPORT INFORMATION
  Report Type: Spontaneous
  Country: US (occurrence: US)
  Receive Date: 20160523
  Receipt Date: 20160523
  Transmission Date: 20160815
  Serious: No
  Sender: FDA-Public Use
  Company Number: US-TEVA-621229USA

PATIENT
  Sex: Female

DRUGS (1)
  1. SOTALOL. [Suspect]
     Active Substance: SOTALOL
     Route: 065

REACTIONS (5)
  - Tremor [Unknown]
  - Pruritus [Unknown]
  - Gait disturbance [Unknown]
  - Vasodilatation [Unknown]
  - Diplopia [Unknown]
